FAERS Safety Report 5368831-1 (Version None)
Quarter: 2007Q2

REPORT INFORMATION
  Report Type: 
  Country: None (occurrence: None)
  Receive Date: 20070621
  Receipt Date: 20070621
  Transmission Date: 20071010
  Serious: Yes (Other)
  Sender: FDA-Public Use
  Company Number: None

PATIENT
  Age: 25 Year
  Sex: Female
  Weight: 50 kg

DRUGS (1)
  1. LEUKINE [Suspect]
     Indication: NEUTROPHIL COUNT DECREASED
     Dosage: 500 MCG TIMES ONE DOSE SQ
     Route: 058
     Dates: start: 20070501, end: 20070501

REACTIONS (4)
  - COLD SWEAT [None]
  - DYSPNOEA [None]
  - PALLOR [None]
  - SYNCOPE [None]
